FAERS Safety Report 7861237-2 (Version None)
Quarter: 2011Q4

REPORT INFORMATION
  Report Type: 
  Country: None (occurrence: None)
  Receive Date: 20111026
  Receipt Date: 20111014
  Transmission Date: 20120403
  Serious: Yes (Hospitalization)
  Sender: FDA-Public Use
  Company Number: DSA_47918_2011

PATIENT
  Age: 54 Year
  Sex: Male

DRUGS (3)
  1. CARDIZEM [Suspect]
     Indication: PRODUCT USED FOR UNKNOWN INDICATION
     Dosage: (300 MG, DAILY ORAL)
     Route: 048
     Dates: start: 19971215, end: 19990108
  2. GLYCERYL TRINITRATE [Concomitant]
  3. AMIODARONE HCL [Concomitant]

REACTIONS (3)
  - HAEMOPTYSIS [None]
  - PLATELET COUNT DECREASED [None]
  - CONDITION AGGRAVATED [None]
